FAERS Safety Report 8740401 (Version 3)
Quarter: 2013Q4

REPORT INFORMATION
  Report Type: Spontaneous
  Country: US (occurrence: US)
  Receive Date: 20120823
  Receipt Date: 20131003
  Transmission Date: 20140711
  Serious: No
  Sender: FDA-Public Use
  Company Number: US-009507513-1208USA004802

PATIENT
  Sex: Female

DRUGS (1)
  1. MAXALT MLT [Suspect]
     Indication: MIGRAINE

REACTIONS (2)
  - Pain in jaw [Unknown]
  - Neck pain [Unknown]
